FAERS Safety Report 12343570 (Version 1)
Quarter: 2016Q2

REPORT INFORMATION
  Report Type: Spontaneous
  Country: GB (occurrence: GB)
  Receive Date: 20160506
  Receipt Date: 20160506
  Transmission Date: 20160815
  Serious: Yes (Other)
  Sender: FDA-Public Use
  Company Number: GB-VALIDUS PHARMACEUTICALS LLC-GB-2016VAL000568

PATIENT

DRUGS (2)
  1. NORPROLAC [Suspect]
     Active Substance: QUINAGOLIDE HYDROCHLORIDE
     Indication: HYPERPROLACTINAEMIA
     Dosage: 0.15 MG, QD
     Route: 048
     Dates: end: 199202
  2. PARLODEL [Suspect]
     Active Substance: BROMOCRIPTINE MESYLATE
     Indication: PITUITARY TUMOUR
     Dosage: UNK
     Dates: start: 1989

REACTIONS (5)
  - Sexually inappropriate behaviour [Unknown]
  - Aggression [Unknown]
  - Hypomania [Unknown]
  - Libido increased [Unknown]
  - Psychotic disorder [Unknown]

NARRATIVE: CASE EVENT DATE: 1992
